FAERS Safety Report 5602509-1 (Version None)
Quarter: 2008Q1

REPORT INFORMATION
  Report Type: 
  Country: None (occurrence: None)
  Receive Date: 20080125
  Receipt Date: 20080123
  Transmission Date: 20080703
  Serious: Yes (Other)
  Sender: FDA-Public Use
  Company Number: B0480868A

PATIENT
  Age: 19 Year
  Sex: Female

DRUGS (6)
  1. PAXIL [Suspect]
     Indication: DRUG USE FOR UNKNOWN INDICATION
     Dosage: 420MG PER DAY
     Route: 048
     Dates: start: 20070723, end: 20070723
  2. MYSLEE [Concomitant]
     Route: 048
  3. SORENTMIN [Concomitant]
     Route: 048
  4. DEPAS [Concomitant]
     Route: 048
  5. ANAFRANIL [Concomitant]
     Route: 048
  6. LEXOTAN [Concomitant]
     Route: 048

REACTIONS (2)
  - OVERDOSE [None]
  - SUICIDE ATTEMPT [None]
